FAERS Safety Report 13876410 (Version 1)
Quarter: 2017Q3

REPORT INFORMATION
  Report Type: Spontaneous
  Country: CH (occurrence: CH)
  Receive Date: 20170817
  Receipt Date: 20170817
  Transmission Date: 20171127
  Serious: Yes (Hospitalization)
  Sender: FDA-Public Use
  Company Number: CH-TEVA-795474ISR

PATIENT
  Age: 53 Year
  Sex: Male
  Weight: 78 kg

DRUGS (11)
  1. (BRUFEN) ADDITIONAL INFORMATION: LONG-STANDING TREATMENT [Suspect]
     Active Substance: IBUPROFEN
     Dates: end: 20170706
  2. CEFEPIME [Suspect]
     Active Substance: CEFEPIME HYDROCHLORIDE
     Dates: start: 20170614, end: 20170616
  3. PANTOZOL [Suspect]
     Active Substance: PANTOPRAZOLE SODIUM
     Dates: start: 2016, end: 20170705
  4. NOVALGIN [Suspect]
     Active Substance: METAMIZOLE SODIUM
     Dates: start: 20170613, end: 20170623
  5. SERESTA [Suspect]
     Active Substance: OXAZEPAM
     Dates: start: 20170612, end: 20170623
  6. MADOPAR [Concomitant]
     Active Substance: BENSERAZIDE HYDROCHLORIDE\LEVODOPA
     Dates: start: 2016
  7. FRAGMIN [Concomitant]
     Active Substance: DALTEPARIN SODIUM
     Dates: start: 20170613
  8. DAFALGAN [Concomitant]
     Active Substance: ACETAMINOPHEN
     Dates: start: 20170625, end: 20170710
  9. VANCOCIN [Suspect]
     Active Substance: VANCOMYCIN HYDROCHLORIDE
     Dates: start: 20170615, end: 20170705
  10. TARGIN [Concomitant]
     Active Substance: NALOXONE HYDROCHLORIDE\OXYCODONE HYDROCHLORIDE
     Dates: start: 20170621
  11. COLECALCIFEROL [Concomitant]
     Active Substance: CHOLECALCIFEROL

REACTIONS (1)
  - Agranulocytosis [Recovered/Resolved]

NARRATIVE: CASE EVENT DATE: 20170704
